FAERS Safety Report 4846629-8 (Version None)
Quarter: 2005Q4

REPORT INFORMATION
  Report Type: 
  Country: None (occurrence: None)
  Receive Date: 20051206
  Receipt Date: 20051125
  Transmission Date: 20060501
  Serious: Yes (Other)
  Sender: FDA-Public Use
  Company Number: PHRM2005FR03124

PATIENT
  Age: 38 Year
  Sex: Male

DRUGS (1)
  1. NISIS [Suspect]
     Indication: HYPERTENSION
     Dosage: 80 MG, QD
     Route: 048
     Dates: start: 20040501, end: 20050801

REACTIONS (2)
  - INFERTILITY MALE [None]
  - SPERM COUNT DECREASED [None]
